FAERS Safety Report 25106968 (Version 1)
Quarter: 2025Q1

REPORT INFORMATION
  Report Type: Other
  Country: FR (occurrence: FR)
  Receive Date: 20250321
  Receipt Date: 20250321
  Transmission Date: 20250409
  Serious: Yes (Congenital Anomaly, Other)
  Sender: Alora Pharma
  Company Number: FR-VERTICAL PHARMACEUTICALS-2025ALO02098

PATIENT
  Sex: Female

DRUGS (2)
  1. ESTRADIOL [Suspect]
     Active Substance: ESTRADIOL
     Indication: Product used for unknown indication
     Route: 064
  2. PROGESTERONE [Suspect]
     Active Substance: PROGESTERONE
     Indication: Product used for unknown indication
     Route: 064

REACTIONS (4)
  - Uterine atrophy [Not Recovered/Not Resolved]
  - Suicide attempt [Unknown]
  - Schizophrenia [Unknown]
  - Foetal exposure during pregnancy [Unknown]
